FAERS Safety Report 9989322 (Version 1)
Quarter: 2013Q4

REPORT INFORMATION
  Report Type: Spontaneous
  Country: US (occurrence: None)
  Receive Date: 20131025
  Receipt Date: 20131025
  Transmission Date: 20140711
  Serious: Yes (Other)
  Sender: FDA-Public Use
  Company Number: ADR-2013-01548

PATIENT
  Age: 33 Year
  Sex: Female

DRUGS (4)
  1. LIORESAL INTRATHECAL (BACLOFEN INJECTION) 2000 MCG/ML [Suspect]
     Indication: MUSCLE SPASTICITY
     Dosage: DAY
  2. KLONOPIN [Concomitant]
  3. ZANOFLEX [Concomitant]
  4. VALIUM [Concomitant]

REACTIONS (6)
  - Cerebrospinal fluid leakage [None]
  - Hyperhidrosis [None]
  - Convulsion [None]
  - Post procedural complication [None]
  - Muscle spasticity [None]
  - Dystonia [None]
